FAERS Safety Report 9407046 (Version 1)
Quarter: 2013Q3

REPORT INFORMATION
  Report Type: Report from Study
  Country: BE (occurrence: BE)
  Receive Date: 20130718
  Receipt Date: 20130718
  Transmission Date: 20140515
  Serious: Yes (Hospitalization)
  Sender: FDA-Public Use
  Company Number: BE-ABBOTT-13P-013-1119358-00

PATIENT
  Sex: Female

DRUGS (4)
  1. HUMIRA [Suspect]
     Indication: ANKYLOSING SPONDYLITIS
  2. MELOXICAM [Concomitant]
     Indication: ARTHRITIS
  3. PLAQUENIL [Concomitant]
     Indication: ARTHRITIS
  4. OTHER ANTI-TNF [Concomitant]
     Indication: ARTHRITIS

REACTIONS (2)
  - Polychondritis [Recovering/Resolving]
  - Systemic lupus erythematosus [Recovering/Resolving]
